FAERS Safety Report 4375435-6 (Version None)
Quarter: 2004Q2

REPORT INFORMATION
  Report Type: 
  Country: None (occurrence: None)
  Receive Date: 20040607
  Receipt Date: 20040526
  Transmission Date: 20050107
  Serious: Yes (Other)
  Sender: FDA-Public Use
  Company Number: 2004212758US

PATIENT
  Age: 68 Year
  Sex: Female
  Weight: 55.8 kg

DRUGS (4)
  1. MYCOBUTIN [Suspect]
     Indication: TUBERCULOSIS
     Dosage: 150 MG, BID, THREE DAYS A WEEK, UNK
     Route: 065
     Dates: start: 20040430, end: 20040506
  2. BIAXIN [Concomitant]
  3. ETHAMBUTOL HCL [Concomitant]
  4. SYNTHROID [Concomitant]

REACTIONS (7)
  - ARRHYTHMIA [None]
  - DIZZINESS [None]
  - HEARING IMPAIRED [None]
  - INSOMNIA [None]
  - JAUNDICE [None]
  - NAUSEA [None]
  - PYREXIA [None]
